FAERS Safety Report 6156649-1 (Version None)
Quarter: 2009Q2

REPORT INFORMATION
  Report Type: 
  Country: None (occurrence: None)
  Receive Date: 20090416
  Receipt Date: 20090408
  Transmission Date: 20091009
  Serious: Yes (Hospitalization)
  Sender: FDA-Public Use
  Company Number: JP-BRISTOL-MYERS SQUIBB COMPANY-14541817

PATIENT
  Age: 58 Year
  Sex: Female

DRUGS (12)
  1. ABILIFY [Suspect]
     Indication: SCHIZOPHRENIA
     Dosage: 03SEP08-18FEB09(12MG BID)169 DAYS; 19FEB09-16FEB09(12MG QD)
     Route: 048
     Dates: start: 20080903, end: 20090222
  2. RISPERDAL [Concomitant]
     Dosage: GRANULE 1%
     Dates: start: 20090218
  3. DIHYDROERGOTAMINE MESYLATE [Concomitant]
     Dosage: FORM: TABLET
  4. WYPAX [Concomitant]
  5. PANTETHINE [Concomitant]
     Dosage: POWDER 20%
  6. CASANTHRANOL + DOCUSATE SODIUM [Concomitant]
     Dosage: FORM: ENTERIC TABLET
  7. VEGETAMIN-B [Concomitant]
     Dosage: TABS
  8. DORAL [Concomitant]
     Dosage: FORM: TABLET
  9. DIGESTIVE ENZYME [Concomitant]
     Dosage: DIGESTIVE ENZYME WITH BIONATTOMIN  FORM: GRANULE
  10. ERIMIN [Concomitant]
     Dosage: FORM: TABLET
     Dates: start: 20090105, end: 20090218
  11. SENNOSIDE A [Concomitant]
     Dosage: FORM: TABLET
     Dates: end: 20090218
  12. PARKINANE [Concomitant]

REACTIONS (5)
  - AGITATION [None]
  - DECREASED ACTIVITY [None]
  - DELUSION [None]
  - HALLUCINATION [None]
  - THINKING ABNORMAL [None]
